FAERS Safety Report 8355044-4 (Version None)
Quarter: 2012Q2

REPORT INFORMATION
  Report Type: 
  Country: None (occurrence: None)
  Receive Date: 20120511
  Receipt Date: 20120501
  Transmission Date: 20120825
  Serious: Yes (Hospitalization)
  Sender: FDA-Public Use
  Company Number: DK-BAXTER-2012BAX004689

PATIENT
  Sex: Female
  Weight: 97 kg

DRUGS (23)
  1. DOXORUBICIN HCL [Suspect]
     Indication: DIFFUSE LARGE B-CELL LYMPHOMA
     Dosage: 107 MG, UNK
     Route: 042
     Dates: start: 20110325
  2. PREDNISONE TAB [Concomitant]
     Dosage: 100 MG, UNK
     Route: 048
     Dates: start: 20110426, end: 20110430
  3. NEULASTA [Concomitant]
     Indication: DIFFUSE LARGE B-CELL LYMPHOMA
     Dosage: 6 MG, UNK
     Route: 058
     Dates: start: 20110326
  4. OMEPRAZOLE [Concomitant]
     Dosage: 20 MG, UNK
     Route: 048
     Dates: start: 19950615
  5. CYCLOPHOSPHAMIDE [Suspect]
     Indication: DIFFUSE LARGE B-CELL LYMPHOMA
     Dosage: 1612 MG, UNK
     Route: 042
     Dates: start: 20110325
  6. PREDNISOLONE [Concomitant]
     Indication: DIFFUSE LARGE B-CELL LYMPHOMA
     Dosage: 100 MG, UNK
     Route: 048
     Dates: start: 20110325, end: 20110329
  7. PREDNISOLONE [Concomitant]
     Dosage: 100 MG, UNK
     Route: 048
     Dates: start: 20110426, end: 20110426
  8. SULPHAMETHIZOLE [Concomitant]
     Indication: PROPHYLAXIS
     Dosage: 400 MG, UNK
     Route: 048
     Dates: start: 20110218, end: 20110401
  9. CYCLOPHOSPHAMIDE [Suspect]
     Dosage: 1612 MG, UNK
     Route: 042
     Dates: start: 20110426, end: 20110426
  10. CYCLOPHOSPHAMIDE [Suspect]
     Dosage: DOSAGE FORM: UNSPECIFIED
     Route: 042
     Dates: start: 20110426, end: 20110426
  11. VINCRISTINE [Suspect]
     Dosage: DOSAGE FORM: UNSPECIFIED
     Route: 040
     Dates: start: 20110325
  12. RITUXIMAB [Concomitant]
     Indication: DIFFUSE LARGE B-CELL LYMPHOMA
     Dosage: 750 MG, UNK
     Route: 042
     Dates: start: 20110325
  13. VINCRISTINE [Suspect]
     Dosage: DOSAGE FORM: UNSPECIFIED
     Route: 042
     Dates: start: 20110426, end: 20110426
  14. VINCRISTINE [Suspect]
     Dosage: 2 MG, UNK
     Route: 042
     Dates: start: 20110426, end: 20110426
  15. DOXORUBICIN HCL [Suspect]
     Dosage: 107 MG, UNK
     Route: 042
     Dates: start: 20110426, end: 20110426
  16. PREDNISONE TAB [Concomitant]
     Indication: DIFFUSE LARGE B-CELL LYMPHOMA
     Dosage: 100 MG, UNK
     Route: 048
     Dates: start: 20110325, end: 20120329
  17. NEULASTA [Concomitant]
     Dosage: 6 MG, UNK
     Route: 058
     Dates: start: 20110427, end: 20110427
  18. VALACICLOVIR [Concomitant]
     Route: 065
  19. PINEX [Concomitant]
     Indication: ANALGESIC THERAPY
     Dosage: 3000 MG, UNK
     Route: 048
     Dates: start: 20100305
  20. CYCLOPHOSPHAMIDE [Suspect]
     Dosage: DOSAGE FORM: UNSPECIFIED
     Route: 042
     Dates: start: 20110325
  21. VINCRISTINE [Suspect]
     Indication: DIFFUSE LARGE B-CELL LYMPHOMA
     Dosage: 2 MG, UNK
     Route: 042
     Dates: start: 20110325
  22. PREDNISOLONE [Concomitant]
     Dosage: 100 MG, UNK
     Route: 048
     Dates: start: 20110430, end: 20110430
  23. RITUXIMAB [Concomitant]
     Dosage: 750 MG, UNK
     Route: 042
     Dates: start: 20110426, end: 20110426

REACTIONS (5)
  - ANAEMIA [None]
  - VIRAL INFECTION [None]
  - MALAISE [None]
  - DIARRHOEA [None]
  - FEBRILE NEUTROPENIA [None]
